FAERS Safety Report 8066085-9 (Version None)
Quarter: 2012Q1

REPORT INFORMATION
  Report Type: 
  Country: None (occurrence: None)
  Receive Date: 20120117
  Receipt Date: 20120107
  Transmission Date: 20120608
  Serious: Yes (Hospitalization)
  Sender: FDA-Public Use
  Company Number: 2012AP000035

PATIENT
  Age: 79 Year
  Sex: Male

DRUGS (9)
  1. ALENDRONATE SODIUM [Suspect]
     Indication: OSTEOPOROSIS
     Dosage: 70 MG; QW
  2. ERGOCALCIFEROL [Concomitant]
  3. MIRTAZAPINE [Concomitant]
  4. ACETAMINOPHEN [Concomitant]
  5. HYDROXYZINE [Concomitant]
  6. OMEPRAZOLE [Concomitant]
  7. VITAMIN B12 [Concomitant]
  8. CALCIUM CARBONATE [Concomitant]
  9. CORTICOSTEROIDS (CORTICOSTEROIDS) [Concomitant]

REACTIONS (6)
  - SYNCOPE [None]
  - OESOPHAGEAL STENOSIS [None]
  - FOREIGN BODY [None]
  - CHEST DISCOMFORT [None]
  - CHOKING [None]
  - OESOPHAGEAL ULCER [None]
